FAERS Safety Report 7340626-9 (Version None)
Quarter: 2011Q1

REPORT INFORMATION
  Report Type: 
  Country: None (occurrence: None)
  Receive Date: 20110301
  Receipt Date: 20110214
  Transmission Date: 20110831
  Serious: Yes (Hospitalization)
  Sender: FDA-Public Use
  Company Number: 2011S1000114

PATIENT
  Age: 62 Year
  Sex: Male

DRUGS (8)
  1. ZIPSOR [Suspect]
     Indication: MUSCULOSKELETAL PAIN
     Dosage: ; PO
     Route: 048
     Dates: start: 20110124, end: 20110128
  2. ZIPSOR [Suspect]
     Indication: BACK PAIN
     Dosage: ; PO
     Route: 048
     Dates: start: 20110124, end: 20110128
  3. LEXAPRO [Concomitant]
  4. COUMADIN [Concomitant]
  5. LORAZEPAM [Concomitant]
  6. WELLBUTRIN [Concomitant]
  7. LOVENOX [Concomitant]
  8. LORTAB [Concomitant]

REACTIONS (1)
  - PULMONARY EMBOLISM [None]
